FAERS Safety Report 6123230-X (Version None)
Quarter: 2009Q1

REPORT INFORMATION
  Report Type: 
  Country: None (occurrence: None)
  Receive Date: 20090318
  Receipt Date: 20090316
  Transmission Date: 20090719
  Serious: Yes (Hospitalization)
  Sender: FDA-Public Use
  Company Number: FR-BRISTOL-MYERS SQUIBB COMPANY-14546451

PATIENT
  Age: 84 Year
  Sex: Female

DRUGS (6)
  1. COUMADIN [Suspect]
     Dates: start: 20080116, end: 20080129
  2. LASIX [Concomitant]
  3. ANAFRANIL [Concomitant]
  4. LEVOTHYROXINE SODIUM [Concomitant]
  5. VASTEN [Concomitant]
  6. IMOVANE [Concomitant]

REACTIONS (3)
  - DERMATITIS EXFOLIATIVE [None]
  - PRURITUS [None]
  - TOXIC SKIN ERUPTION [None]
